FAERS Safety Report 13594043 (Version 5)
Quarter: 2019Q2

REPORT INFORMATION
  Report Type: Spontaneous
  Country: PT (occurrence: ES)
  Receive Date: 20170530
  Receipt Date: 20190509
  Transmission Date: 20190711
  Serious: Yes (Other)
  Sender: FDA-Public Use
  Company Number: PT-SUNOVION-2017SUN002304

PATIENT

DRUGS (9)
  1. ZEBINIX [Suspect]
     Active Substance: ESLICARBAZEPINE ACETATE
     Indication: PARTIAL SEIZURES
     Dosage: UNKNOWN
     Route: 065
  2. ZEBINIX [Suspect]
     Active Substance: ESLICARBAZEPINE ACETATE
     Indication: PARTIAL SEIZURES WITH SECONDARY GENERALISATION
     Dosage: UNKNOWN
     Route: 065
  3. CARBAMAZEPINE. [Concomitant]
     Active Substance: CARBAMAZEPINE
  4. LAMOTRIGINE. [Concomitant]
     Active Substance: LAMOTRIGINE
  5. PHENYTOIN. [Concomitant]
     Active Substance: PHENYTOIN
  6. LEVETIRACETAM. [Concomitant]
     Active Substance: LEVETIRACETAM
  7. OXCARBAZEPINE. [Concomitant]
     Active Substance: OXCARBAZEPINE
  8. LACOSAMIDE. [Concomitant]
     Active Substance: LACOSAMIDE
  9. ZEBINIX [Suspect]
     Active Substance: ESLICARBAZEPINE ACETATE
     Indication: EPILEPSY

REACTIONS (12)
  - Dizziness [Unknown]
  - Rash [Unknown]
  - Diplopia [Unknown]
  - Hyponatraemia [Unknown]
  - Bradyphrenia [Unknown]
  - Status epilepticus [Unknown]
  - Postictal psychosis [Unknown]
  - Drug ineffective [Unknown]
  - Somnolence [Unknown]
  - Headache [Unknown]
  - Contraindicated product administered [Unknown]
  - Ataxia [Unknown]
